FAERS Safety Report 7131271-9 (Version None)
Quarter: 2010Q4

REPORT INFORMATION
  Report Type: 
  Country: None (occurrence: None)
  Receive Date: 20101124
  Receipt Date: 20101124
  Transmission Date: 20110411
  Serious: Yes (Hospitalization, Other)
  Sender: FDA-Public Use
  Company Number: None

PATIENT
  Age: 26 Year
  Sex: Female
  Weight: 58.0604 kg

DRUGS (1)
  1. YAZ [Suspect]
     Indication: CONTRACEPTION
     Dosage: 1 1X PER DAY PO
     Route: 048
     Dates: start: 20080401, end: 20100309

REACTIONS (20)
  - ABDOMINAL PAIN UPPER [None]
  - ANXIETY [None]
  - CHEST DISCOMFORT [None]
  - DEHYDRATION [None]
  - DEPRESSION [None]
  - DIARRHOEA [None]
  - DIZZINESS [None]
  - DYSPNOEA [None]
  - MULTIPLE ALLERGIES [None]
  - MYALGIA [None]
  - NAUSEA [None]
  - PALPITATIONS [None]
  - PANIC ATTACK [None]
  - SINUS DISORDER [None]
  - SLEEP DISORDER [None]
  - TENSION HEADACHE [None]
  - URTICARIA [None]
  - VISUAL IMPAIRMENT [None]
  - VULVOVAGINAL DRYNESS [None]
  - WEIGHT INCREASED [None]
